FAERS Safety Report 10204139 (Version 2)
Quarter: 2014Q4

REPORT INFORMATION
  Report Type: Report from Study
  Country: US (occurrence: US)
  Receive Date: 20140529
  Receipt Date: 20141027
  Transmission Date: 20150528
  Serious: Yes (Death, Other)
  Sender: FDA-Public Use
  Company Number: US-ASTELLAS-2014US005981

PATIENT
  Age: 44 Year
  Sex: Male

DRUGS (7)
  1. PAZOPANIB [Suspect]
     Active Substance: PAZOPANIB
     Indication: GLIOBLASTOMA MULTIFORME
     Route: 048
  2. EVEROLIMUS [Suspect]
     Active Substance: EVEROLIMUS
     Indication: GLIOBLASTOMA MULTIFORME
     Dosage: UNK, UNKNOWN FREQ.
     Route: 065
     Dates: start: 2013
  3. ERLOTINIB [Suspect]
     Active Substance: ERLOTINIB
     Indication: GLIOBLASTOMA MULTIFORME
     Route: 048
  4. ERLOTINIB [Suspect]
     Active Substance: ERLOTINIB
     Indication: BRAIN NEOPLASM MALIGNANT
  5. PAZOPANIB [Suspect]
     Active Substance: PAZOPANIB
     Route: 048
     Dates: start: 20130320
  6. AVASTIN [Suspect]
     Active Substance: BEVACIZUMAB
     Indication: GLIOBLASTOMA MULTIFORME
     Dosage: UNK, UNKNOWN FREQ.
     Route: 065
  7. SODIUM PHENYLBUTYRATE. [Suspect]
     Active Substance: SODIUM PHENYLBUTYRATE
     Indication: GENERALISED TONIC-CLONIC SEIZURE
     Dosage: UNK, UNKNOWN FREQ.
     Route: 065

REACTIONS (8)
  - Off label use [Unknown]
  - Aphasia [Unknown]
  - Neoplasm recurrence [Unknown]
  - Brain neoplasm [Unknown]
  - Generalised tonic-clonic seizure [Unknown]
  - Malignant neoplasm progression [Fatal]
  - Hemianopia homonymous [Unknown]
  - Paresis [Unknown]

NARRATIVE: CASE EVENT DATE: 2013
